FAERS Safety Report 24234700 (Version 3)
Quarter: 2024Q3

REPORT INFORMATION
  Report Type: Report from Study
  Country: US (occurrence: US)
  Receive Date: 20240821
  Receipt Date: 20240910
  Transmission Date: 20241016
  Serious: No
  Sender: DR REDDYS
  Company Number: US-E2BLSMVVAL-CLI/USA/24/0011610

PATIENT
  Age: 12 Year
  Sex: Female
  Weight: 33.02 kg

DRUGS (2)
  1. JAVYGTOR [Suspect]
     Active Substance: SAPROPTERIN DIHYDROCHLORIDE
     Indication: Product used for unknown indication
     Dosage: DISSOLVE ONE 500 MG POWDER PACKET IN 4 TO 8 OUNCES OF WATER OR APPLE JUICE. TAKE WITH 100 MG TABLET
     Route: 048
  2. JAVYGTOR [Suspect]
     Active Substance: SAPROPTERIN DIHYDROCHLORIDE
     Indication: Product used for unknown indication
     Dosage: DISSOLVE ONE 500 MG POWDER PACKET IN 4 TO 8 OUNCES OF WATER OR APPLE JUICE. TAKE WITH 100 MG TABLET
     Route: 048

REACTIONS (1)
  - Food allergy [Unknown]
